FAERS Safety Report 5797223-6 (Version None)
Quarter: 2008Q3

REPORT INFORMATION
  Report Type: 
  Country: None (occurrence: None)
  Receive Date: 20080701
  Receipt Date: 20080620
  Transmission Date: 20090109
  Serious: Yes (Hospitalization)
  Sender: FDA-Public Use
  Company Number: FR-PFIZER INC-2008052331

PATIENT
  Sex: Female

DRUGS (8)
  1. TAHOR [Suspect]
     Route: 048
  2. COLCHIMAX [Interacting]
     Indication: ARTHRALGIA
     Dosage: FREQ:1 DF DAILY
     Route: 048
     Dates: start: 20080424, end: 20080503
  3. NEORAL [Interacting]
     Indication: NEPHROTIC SYNDROME
     Route: 048
     Dates: start: 20080401, end: 20080503
  4. KAYEXALATE [Interacting]
     Dosage: FREQ:1 DF DAILY
     Route: 048
  5. ZOLPIDEM TARTRATE [Concomitant]
  6. DEDROGYL [Concomitant]
  7. LASIX [Concomitant]
  8. HYZAAR [Concomitant]

REACTIONS (10)
  - CONFUSIONAL STATE [None]
  - DIARRHOEA [None]
  - DRUG INTERACTION [None]
  - HYPOCALCAEMIA [None]
  - HYPOKALAEMIA [None]
  - HYPONATRAEMIA [None]
  - LEUKOPENIA [None]
  - RENAL FAILURE [None]
  - RHABDOMYOLYSIS [None]
  - VOMITING [None]
